FAERS Safety Report 18367612 (Version 1)
Quarter: 2020Q4

REPORT INFORMATION
  Report Type: Spontaneous
  Country: AR (occurrence: AR)
  Receive Date: 20201009
  Receipt Date: 20201009
  Transmission Date: 20210114
  Serious: Yes (Other)
  Sender: FDA-Public Use
  Company Number: AR-PFIZER INC-2020385370

PATIENT
  Age: 59 Year
  Sex: Female

DRUGS (1)
  1. SOMAVERT [Suspect]
     Active Substance: PEGVISOMANT
     Indication: ACROMEGALY
     Dosage: 15 MG, 7 TIMES PER WEEK
     Dates: start: 20111201

REACTIONS (3)
  - Hypothyroidism [Unknown]
  - Neoplasm [Unknown]
  - Coronavirus infection [Unknown]

NARRATIVE: CASE EVENT DATE: 202010
